FAERS Safety Report 23187909 (Version 3)
Quarter: 2023Q4

REPORT INFORMATION
  Report Type: Spontaneous
  Country: US (occurrence: US)
  Receive Date: 20231115
  Receipt Date: 20231204
  Transmission Date: 20240110
  Serious: Yes (Other)
  Sender: FDA-Public Use
  Company Number: US-ORGANON-O2311USA001500

PATIENT
  Sex: Female
  Weight: 48 kg

DRUGS (2)
  1. NEXPLANON [Suspect]
     Active Substance: ETONOGESTREL
     Indication: Contraception
     Dosage: 1 IMPLANT, LEFT ARM
     Route: 059
     Dates: start: 20230905, end: 20231113
  2. SERTRALINE [Concomitant]
     Active Substance: SERTRALINE HYDROCHLORIDE
     Indication: Depression
     Dosage: 75 MILLIGRAM, QD
     Route: 048

REACTIONS (11)
  - Device expulsion [Recovered/Resolved]
  - Device dislocation [Recovering/Resolving]
  - Skin disorder [Unknown]
  - Pharyngitis streptococcal [Unknown]
  - Nausea [Unknown]
  - Vomiting [Unknown]
  - Excessive granulation tissue [Unknown]
  - Device placement issue [Recovered/Resolved]
  - Implant site erythema [Unknown]
  - Implant site pain [Unknown]
  - Implant site cellulitis [Unknown]

NARRATIVE: CASE EVENT DATE: 20230101
